FAERS Safety Report 18465216 (Version 2)
Quarter: 2020Q4

REPORT INFORMATION
  Report Type: Spontaneous
  Country: US (occurrence: US)
  Receive Date: 20201105
  Receipt Date: 20201118
  Transmission Date: 20210114
  Serious: Yes (Other)
  Sender: FDA-Public Use
  Company Number: US-DRREDDYS-USA/USA/20/0128711

PATIENT
  Age: 80 Year
  Sex: Male

DRUGS (3)
  1. IMATINIB MESYLATE TABLETS [Suspect]
     Active Substance: IMATINIB MESYLATE
     Dates: start: 201707
  2. IMATINIB MESYLATE TABLETS [Suspect]
     Active Substance: IMATINIB MESYLATE
     Dates: start: 201809
  3. IMATINIB MESYLATE TABLETS [Suspect]
     Active Substance: IMATINIB MESYLATE
     Indication: GASTROINTESTINAL STROMAL TUMOUR
     Dates: end: 201606

REACTIONS (3)
  - Gastrointestinal stromal tumour [Unknown]
  - Pemphigus [Unknown]
  - Neoplasm progression [Unknown]
